FAERS Safety Report 21521105 (Version 1)
Quarter: 2022Q4

REPORT INFORMATION
  Report Type: Spontaneous
  Country: CN (occurrence: CN)
  Receive Date: 20221028
  Receipt Date: 20221028
  Transmission Date: 20230113
  Serious: Yes (Hospitalization, Other)
  Sender: FDA-Public Use
  Company Number: None

PATIENT
  Age: 11 Year
  Sex: Female
  Weight: 26.4 kg

DRUGS (10)
  1. CYCLOPHOSPHAMIDE [Suspect]
     Active Substance: CYCLOPHOSPHAMIDE
     Indication: Acute lymphocytic leukaemia
     Dosage: 1 G (1000 MG/M2), QD, D1 (DILUTED WITH 100 ML OF SODIUM CHLORIDE) (CTX0, 4, 8H) (CAM REGIMEN)
     Route: 041
     Dates: start: 20220827, end: 20220827
  2. MESNA [Suspect]
     Active Substance: MESNA
     Indication: Acute lymphocytic leukaemia
     Dosage: 0.2 G, QD, D1 (DILUTED WITH 60 ML OF SODIUM CHLORIDE)
     Route: 041
     Dates: start: 20220827, end: 20220827
  3. DEXAMETHASONE SODIUM PHOSPHATE [Suspect]
     Active Substance: DEXAMETHASONE SODIUM PHOSPHATE
     Indication: Acute lymphocytic leukaemia
     Dosage: 5 MG, QD, D1 (CAM REGIMEN)
     Route: 037
     Dates: start: 20220827, end: 20220827
  4. CYTARABINE [Suspect]
     Active Substance: CYTARABINE
     Indication: Acute lymphocytic leukaemia
     Dosage: 0.053 G (50 MG/M2), Q12H, D1-7 (CAM REGIMEN)
     Route: 058
     Dates: start: 20220827, end: 20220902
  5. CYTARABINE [Suspect]
     Active Substance: CYTARABINE
     Dosage: 0.035 G (35 MG), QD, D1 (CAM REGIMEN)
     Route: 037
     Dates: start: 20220827, end: 20220827
  6. METHOTREXATE [Suspect]
     Active Substance: METHOTREXATE
     Indication: Acute lymphocytic leukaemia
     Dosage: 0.0125 G (12.5 MG), QD, D1 (CAM REGIMEN)
     Route: 037
     Dates: start: 20220827, end: 20220827
  7. SODIUM CHLORIDE [Suspect]
     Active Substance: SODIUM CHLORIDE
     Indication: Vehicle solution use
     Dosage: 100 ML, QD, D1 (USED TO DILUTE 1 G CYCLOPHOSPHAMIDE) (CAM REGIMEN)
     Route: 041
     Dates: start: 20220827, end: 20220827
  8. SODIUM CHLORIDE [Suspect]
     Active Substance: SODIUM CHLORIDE
     Dosage: 60 ML, QD, D1 (USED TO DILUTE 0.2 G MESNA) (CAM REGIMEN)
     Route: 041
     Dates: start: 20220827, end: 20220827
  9. SODIUM CHLORIDE [Suspect]
     Active Substance: SODIUM CHLORIDE
     Dosage: 5 ML, QD
     Route: 037
     Dates: start: 20220827, end: 20220827
  10. SODIUM CHLORIDE [Suspect]
     Active Substance: SODIUM CHLORIDE
     Dosage: 5 ML, QD
     Route: 037
     Dates: start: 20220827, end: 20220827

REACTIONS (1)
  - Myelosuppression [Recovering/Resolving]

NARRATIVE: CASE EVENT DATE: 20220831
